FAERS Safety Report 5921625-8 (Version None)
Quarter: 2008Q4

REPORT INFORMATION
  Report Type: 
  Country: None (occurrence: None)
  Receive Date: 20081016
  Receipt Date: 20081016
  Transmission Date: 20090506
  Serious: Yes (Life-Threatening)
  Sender: FDA-Public Use
  Company Number: None

PATIENT
  Sex: Female
  Weight: 68.0396 kg

DRUGS (4)
  1. CYMBALTA [Suspect]
     Indication: ANXIETY
     Dosage: 60MG ONCE DAILY
     Dates: start: 20070601
  2. CYMBALTA [Suspect]
     Indication: DEPRESSION
     Dosage: 60MG ONCE DAILY
     Dates: start: 20070601
  3. CYMBALTA [Suspect]
     Indication: ANXIETY
     Dosage: 60MG ONCE DAILY
     Dates: start: 20081001
  4. CYMBALTA [Suspect]
     Indication: DEPRESSION
     Dosage: 60MG ONCE DAILY
     Dates: start: 20081001

REACTIONS (1)
  - ALCOHOLISM [None]
